FAERS Safety Report 12882406 (Version 1)
Quarter: 2016Q4

REPORT INFORMATION
  Report Type: Spontaneous
  Country: IE (occurrence: IE)
  Receive Date: 20161025
  Receipt Date: 20161025
  Transmission Date: 20170207
  Serious: Yes (Other)
  Sender: FDA-Public Use
  Company Number: IE-PFIZER INC-2014333363

PATIENT
  Age: 57 Year
  Sex: Male

DRUGS (4)
  1. SUTENT [Suspect]
     Active Substance: SUNITINIB MALATE
     Indication: METASTATIC RENAL CELL CARCINOMA
     Dosage: 50 MG, DAILY ON 4/2 SCHEDULE
     Route: 048
     Dates: start: 20060901, end: 200810
  2. SUTENT [Suspect]
     Active Substance: SUNITINIB MALATE
     Dosage: UNK
     Dates: start: 200903, end: 20120622
  3. SUTENT [Suspect]
     Active Substance: SUNITINIB MALATE
     Dosage: 50 MG, DAILY, 2 WEEKS ON/ 1 WEEK OFF
     Dates: start: 20140918
  4. ELTROXIN [Concomitant]
     Active Substance: LEVOTHYROXINE
     Dosage: 175 UG, DAILY
     Route: 048
     Dates: start: 20141103

REACTIONS (10)
  - Epistaxis [Unknown]
  - Nausea [Unknown]
  - Hypothyroidism [Unknown]
  - Neoplasm progression [Unknown]
  - Hypertension [Unknown]
  - Vomiting [Unknown]
  - Proctalgia [Unknown]
  - Diarrhoea [Unknown]
  - Bradycardia [Unknown]
  - Palmar-plantar erythrodysaesthesia syndrome [Unknown]

NARRATIVE: CASE EVENT DATE: 201410
